FAERS Safety Report 8121979-0 (Version None)
Quarter: 2012Q1

REPORT INFORMATION
  Report Type: 
  Country: None (occurrence: None)
  Receive Date: 20120208
  Receipt Date: 20120131
  Transmission Date: 20120608
  Serious: Yes (Hospitalization, Other)
  Sender: FDA-Public Use
  Company Number: US-BAYER-2011-111094

PATIENT
  Age: 25 Year
  Sex: Female
  Weight: 59 kg

DRUGS (7)
  1. AMOXICILLIN [Concomitant]
  2. YASMIN [Suspect]
     Dosage: UNK
     Route: 048
     Dates: start: 20080601, end: 20091101
  3. DROSPIRENONE AND ETHINYL ESTRADIOL [Suspect]
     Dosage: UNK
     Route: 048
     Dates: start: 20080601, end: 20091101
  4. CARAFATE [Concomitant]
  5. FLAGYL [Concomitant]
  6. AZITHROMYCIN [Concomitant]
  7. PRILOSEC [Concomitant]

REACTIONS (7)
  - DECREASED APPETITE [None]
  - CHOLECYSTITIS CHRONIC [None]
  - ABDOMINAL PAIN [None]
  - NAUSEA [None]
  - DEPRESSION [None]
  - INJURY [None]
  - CHOLECYSTECTOMY [None]
